FAERS Safety Report 4484601-0 (Version None)
Quarter: 2004Q3

REPORT INFORMATION
  Report Type: 
  Country: None (occurrence: None)
  Receive Date: 20040921
  Receipt Date: 20031031
  Transmission Date: 20050211
  Serious: Yes (Hospitalization)
  Sender: FDA-Public Use
  Company Number: 163-20785-03110029

PATIENT
  Age: 58 Year
  Sex: Male

DRUGS (7)
  1. THALOMID [Suspect]
     Indication: MULTIPLE MYELOMA
     Dosage: 200 MG, DAILY, ORAL
     Route: 048
     Dates: start: 20030830, end: 20030905
  2. MELPHALAN (CAPSULES) [Suspect]
     Indication: MULTIPLE MYELOMA
     Dosage: 90 MG, INTRAVENOUS
     Route: 042
     Dates: start: 20030830, end: 20030831
  3. DEXAMETHASONE [Suspect]
     Indication: MULTIPLE MYELOMA
     Dosage: 40 MG, ORAL
     Route: 048
     Dates: start: 20030830, end: 20030902
  4. CISPLATIN [Suspect]
     Indication: MULTIPLE MYELOMA
     Dosage: 10 MG, INTRAVENOUS
     Route: 042
     Dates: start: 20030830, end: 20030831
  5. ADRIAMYCIN PFS [Suspect]
     Indication: MULTIPLE MYELOMA
     Dosage: 72 MG, INTRAVENOUS
     Route: 042
     Dates: start: 20030830, end: 20030831
  6. CYCLOPHOSPHAMIDE [Suspect]
     Indication: MULTIPLE MYELOMA
     Dosage: 1450 MG, INTRAVENOUS
     Route: 042
     Dates: start: 20030830, end: 20030831
  7. ETOPOSIDE [Suspect]
     Indication: MULTIPLE MYELOMA
     Dosage: 145 MG, INTRAVENOUS
     Route: 042
     Dates: start: 20030830, end: 20030831

REACTIONS (13)
  - ANAEMIA [None]
  - BACK PAIN [None]
  - CHILLS [None]
  - DIZZINESS [None]
  - ELECTROLYTE IMBALANCE [None]
  - GASTROINTESTINAL HAEMORRHAGE [None]
  - HYPOTENSION [None]
  - MEDICATION ERROR [None]
  - OEDEMA PERIPHERAL [None]
  - PYREXIA [None]
  - RECTAL HAEMORRHAGE [None]
  - RECTAL ULCER [None]
  - SYNCOPE [None]
